FAERS Safety Report 13246200 (Version 1)
Quarter: 2017Q1

REPORT INFORMATION
  Report Type: Spontaneous
  Country: GB (occurrence: GB)
  Receive Date: 20170217
  Receipt Date: 20170217
  Transmission Date: 20170428
  Serious: Yes (Hospitalization, Disabling)
  Sender: FDA-Public Use
  Company Number: GB-TEVA-740119ACC

PATIENT
  Age: 78 Year
  Sex: Female

DRUGS (11)
  1. CALCIUM AND VITAMIN D [Concomitant]
     Active Substance: CALCIUM\VITAMIN D
  2. LERCANIDIPINE [Concomitant]
     Active Substance: LERCANIDIPINE
  3. GABAPENTIN. [Suspect]
     Active Substance: GABAPENTIN
     Indication: NEURALGIA
     Dosage: 900 MILLIGRAM DAILY;
     Route: 048
  4. ALLOPURINOL. [Concomitant]
     Active Substance: ALLOPURINOL
  5. CYCLIZINE [Concomitant]
     Active Substance: CYCLIZINE
  6. FOLIC ACID. [Concomitant]
     Active Substance: FOLIC ACID
  7. AMITRIPTYLINE [Suspect]
     Active Substance: AMITRIPTYLINE
     Indication: NEURALGIA
     Dosage: 30 MILLIGRAM DAILY;
     Route: 048
  8. BISOPROLOL [Concomitant]
     Active Substance: BISOPROLOL
  9. DOXAZOSIN [Concomitant]
     Active Substance: DOXAZOSIN\DOXAZOSIN MESYLATE
  10. DIGOXIN. [Concomitant]
     Active Substance: DIGOXIN
  11. OMEPRAZOLE. [Concomitant]
     Active Substance: OMEPRAZOLE

REACTIONS (1)
  - Hallucination [Recovered/Resolved]
